FAERS Safety Report 19811521 (Version 1)
Quarter: 2021Q3

REPORT INFORMATION
  Report Type: Other
  Country: US (occurrence: US)
  Receive Date: 20210909
  Receipt Date: 20210909
  Transmission Date: 20211014
  Serious: Yes (Life-Threatening, Hospitalization)
  Sender: FDA-Public Use
  Company Number: US-C B FLEET CO INC-202108-US-002949

PATIENT
  Age: 20 Month
  Sex: Female
  Weight: 10.8 kg

DRUGS (50)
  1. ALBUTEROL. [Suspect]
     Active Substance: ALBUTEROL
  2. EPINEPHRINE. [Suspect]
     Active Substance: EPINEPHRINE
  3. ACETAZOLAMIDE. [Suspect]
     Active Substance: ACETAZOLAMIDE
     Dosage: 1 DOSE
  4. DEXMEDETOMIDINE. [Suspect]
     Active Substance: DEXMEDETOMIDINE
  5. FENTANYL. [Suspect]
     Active Substance: FENTANYL
  6. HYDROXYZINE [Suspect]
     Active Substance: HYDROXYZINE HYDROCHLORIDE
  7. IBUPROFEN. [Suspect]
     Active Substance: IBUPROFEN
  8. RISPERIDONE. [Suspect]
     Active Substance: RISPERIDONE
  9. VANCOMYCIN [Suspect]
     Active Substance: VANCOMYCIN
  10. HELIUM?OXYGEN [Suspect]
     Active Substance: HELIUM\OXYGEN
  11. DIPHENHYDRAMINE. [Suspect]
     Active Substance: DIPHENHYDRAMINE
  12. FUROSEMIDE. [Suspect]
     Active Substance: FUROSEMIDE
  13. KETAMINE [Suspect]
     Active Substance: KETAMINE
  14. METHADONE [Suspect]
     Active Substance: METHADONE HYDROCHLORIDE
  15. SULFAMETHOXAZOLE?TRIMETHOPRIM [Suspect]
     Active Substance: SULFAMETHOXAZOLE\TRIMETHOPRIM
  16. AMPICILLIN?SULBACTAM [Suspect]
     Active Substance: AMPICILLIN SODIUM\SULBACTAM SODIUM
  17. HEPARIN [Suspect]
     Active Substance: HEPARIN SODIUM
     Dosage: FLUSHES AND CENTRAL VENOUS LINE FLUIDS
  18. MAGNESIUM SULFATE. [Suspect]
     Active Substance: MAGNESIUM SULFATE
  19. SENNOSIDES. [Suspect]
     Active Substance: SENNOSIDES
  20. UNSPECIFIED INGREDIENT [Suspect]
     Active Substance: UNSPECIFIED INGREDIENT
  21. ACETAMINOPHEN. [Suspect]
     Active Substance: ACETAMINOPHEN
     Dosage: IV DAYS 2 AND 27?33, DOSAGE OF 10MG/KG
     Route: 042
  22. CALCIUM GLUCONATE. [Suspect]
     Active Substance: CALCIUM GLUCONATE
  23. CHLORAL HYDRATE [Suspect]
     Active Substance: CHLORAL HYDRATE
  24. CHLOROTHIAZIDE. [Suspect]
     Active Substance: CHLOROTHIAZIDE
  25. CLONIDINE. [Suspect]
     Active Substance: CLONIDINE
  26. LORAZEPAM. [Suspect]
     Active Substance: LORAZEPAM
  27. MORPHINE [Suspect]
     Active Substance: MORPHINE
  28. PANTOPRAZOLE [Suspect]
     Active Substance: PANTOPRAZOLE
  29. TPN [AMINO ACIDS NOS;CARBOHYDRATES NOS;MINERALS NOS;VITAMINS NOS] [Suspect]
     Active Substance: AMINO ACIDS\CARBOHYDRATES\MINERALS\VITAMINS
  30. VECURONIUM [Suspect]
     Active Substance: VECURONIUM BROMIDE
  31. AMIKACIN. [Suspect]
     Active Substance: AMIKACIN
  32. FLUCONAZOLE. [Suspect]
     Active Substance: FLUCONAZOLE
  33. PROPOFOL. [Suspect]
     Active Substance: PROPOFOL
  34. SODIUM CHLORIDE. [Suspect]
     Active Substance: SODIUM CHLORIDE
  35. DOPAMINE [Suspect]
     Active Substance: DOPAMINE HYDROCHLORIDE
  36. METRONIDAZOLE. [Suspect]
     Active Substance: METRONIDAZOLE
  37. POTASSIUM CHLORIDE. [Suspect]
     Active Substance: POTASSIUM CHLORIDE
  38. CEFEPIME [Suspect]
     Active Substance: CEFEPIME HYDROCHLORIDE
  39. CEFTRIAXONE. [Suspect]
     Active Substance: CEFTRIAXONE
  40. DEXAMETHASONE. [Suspect]
     Active Substance: DEXAMETHASONE
     Dosage: 1 DOSE
  41. DIAZEPAM. [Suspect]
     Active Substance: DIAZEPAM
     Dosage: 2 DOSES
  42. HYDROMORPHONE [Suspect]
     Active Substance: HYDROMORPHONE
  43. OMEPRAZOLE. [Suspect]
     Active Substance: OMEPRAZOLE
  44. ROCURONIUM [Suspect]
     Active Substance: ROCURONIUM BROMIDE
  45. ACETAMINOPHEN. [Suspect]
     Active Substance: ACETAMINOPHEN
     Indication: PAIN
     Dosage: ENTERAL USE ON DAYS 2?26, APPROXIMATELY 15 MG/KG (160 MG)
  46. N?ACETYLCYSTEINE [Suspect]
     Active Substance: ACETYLCYSTEINE
     Indication: TOXICITY TO VARIOUS AGENTS
     Dosage: 150 MG/KG LOADING DOSE OVER 1 HOUR; 50 MG/KG OVER 4 HOURS; AND 100 MG/KG?OVER 16 HOURS
  47. MIDAZOLAM. [Suspect]
     Active Substance: MIDAZOLAM
  48. NALOXONE [Suspect]
     Active Substance: NALOXONE
  49. PIPERACILLIN AND TAZOBACTAM [Suspect]
     Active Substance: PIPERACILLIN SODIUM\TAZOBACTAM SODIUM
  50. POLYETHYLENE GLYCOL [Suspect]
     Active Substance: POLYETHYLENE GLYCOLS

REACTIONS (3)
  - Toxicity to various agents [Recovered/Resolved]
  - Off label use [None]
  - Hepatic function abnormal [Recovered/Resolved]
